FAERS Safety Report 15622215 (Version 2)
Quarter: 2019Q1

REPORT INFORMATION
  Report Type: Report from Study
  Country: US (occurrence: US)
  Receive Date: 20181115
  Receipt Date: 20190118
  Transmission Date: 20190417
  Serious: Yes (Death, Other)
  Sender: FDA-Public Use
  Company Number: US-GILEAD-2018-0371893

PATIENT
  Age: 90 Year
  Sex: Female
  Weight: 56.24 kg

DRUGS (7)
  1. O2 [OXYGEN] [Concomitant]
  2. BUREX [Concomitant]
  3. METOLAZONE. [Concomitant]
     Active Substance: METOLAZONE
  4. AMBRISENTAN [Suspect]
     Active Substance: AMBRISENTAN
     Indication: PULMONARY ARTERIAL HYPERTENSION
     Dosage: 10 MG, QD
     Route: 048
     Dates: start: 20180209
  5. DIGOXIN. [Concomitant]
     Active Substance: DIGOXIN
  6. TADALAFIL. [Concomitant]
     Active Substance: TADALAFIL
  7. SPIRONOLACTON [Concomitant]
     Active Substance: SPIRONOLACTONE

REACTIONS (3)
  - Hypersomnia [Unknown]
  - Condition aggravated [Unknown]
  - Death [Fatal]

NARRATIVE: CASE EVENT DATE: 20181108
